FAERS Safety Report 12927676 (Version 1)
Quarter: 2016Q4

REPORT INFORMATION
  Report Type: Spontaneous
  Country: US (occurrence: US)
  Receive Date: 20161109
  Receipt Date: 20161109
  Transmission Date: 20170207
  Serious: Yes (Hospitalization)
  Sender: FDA-Public Use
  Company Number: None

PATIENT
  Age: 78 Year
  Sex: Female
  Weight: 80.4 kg

DRUGS (9)
  1. MAGOX [Concomitant]
  2. ZYPREXA [Concomitant]
     Active Substance: OLANZAPINE
  3. LOSARTAN. [Concomitant]
     Active Substance: LOSARTAN
  4. ACYCLOVIR. [Suspect]
     Active Substance: ACYCLOVIR
     Indication: MENINGOENCEPHALITIS HERPETIC
     Route: 042
     Dates: start: 20161029, end: 20161107
  5. SYNTHROID [Concomitant]
     Active Substance: LEVOTHYROXINE SODIUM
  6. KEPPRA [Concomitant]
     Active Substance: LEVETIRACETAM
  7. GABAPENTIN. [Concomitant]
     Active Substance: GABAPENTIN
  8. TOPROL XL [Concomitant]
     Active Substance: METOPROLOL SUCCINATE
  9. POTASSIUM ORAL SUPPLEMENT [Concomitant]

REACTIONS (1)
  - Acute kidney injury [None]

NARRATIVE: CASE EVENT DATE: 20161107
